FAERS Safety Report 4352623-6 (Version None)
Quarter: 2004Q2

REPORT INFORMATION
  Report Type: 
  Country: None (occurrence: None)
  Receive Date: 20040504
  Receipt Date: 20040423
  Transmission Date: 20050107
  Serious: Yes (Hospitalization, Other)
  Sender: FDA-Public Use
  Company Number: PHRM2004FR01637

PATIENT
  Age: 95 Year
  Sex: Female

DRUGS (6)
  1. VOLTAREN [Suspect]
     Indication: BACK PAIN
     Dosage: 75 MG, QD
     Route: 048
     Dates: start: 20040216, end: 20040223
  2. FUROSEMIDE [Concomitant]
     Indication: ESSENTIAL HYPERTENSION
     Dosage: 40 MG/DAY
     Route: 048
  3. VASTAREL ^BIOPHARMA^ [Concomitant]
     Dosage: 40 MG/DAY
     Route: 048
  4. DIFFU K [Concomitant]
     Dosage: 1 DF, QD
     Route: 048
  5. ANTACID TAB [Concomitant]
     Indication: PROPHYLAXIS
  6. ACETAMINOPHEN [Concomitant]
     Dosage: 2 DF/DAY
     Route: 048

REACTIONS (8)
  - GASTRIC ULCER [None]
  - HAEMOGLOBIN DECREASED [None]
  - MELAENA [None]
  - NORMOCHROMIC NORMOCYTIC ANAEMIA [None]
  - PALLOR [None]
  - RECTAL HAEMORRHAGE [None]
  - RED BLOOD CELL COUNT DECREASED [None]
  - VISUAL DISTURBANCE [None]
